FAERS Safety Report 23487377 (Version 5)
Quarter: 2024Q1

REPORT INFORMATION
  Report Type: Spontaneous
  Country: DO (occurrence: DO)
  Receive Date: 20240206
  Receipt Date: 20240318
  Transmission Date: 20240409
  Serious: No
  Sender: FDA-Public Use
  Company Number: DO-PFIZER INC-PV202400007024

PATIENT
  Age: 10 Year
  Sex: Male

DRUGS (1)
  1. GENOTROPIN [Suspect]
     Active Substance: SOMATROPIN
     Dosage: 1.2 MG, 1X/DAY AT NIGHT

REACTIONS (3)
  - Device physical property issue [Unknown]
  - Device information output issue [Unknown]
  - Device malfunction [Unknown]
